FAERS Safety Report 7998944-7 (Version None)
Quarter: 2011Q4

REPORT INFORMATION
  Report Type: 
  Country: None (occurrence: None)
  Receive Date: 20111221
  Receipt Date: 20111219
  Transmission Date: 20120403
  Serious: Yes (Other)
  Sender: FDA-Public Use
  Company Number: US-TEVA-305886USA

PATIENT
  Sex: Female

DRUGS (2)
  1. DROSPIRENONE AND ETHINYL ESTRADIOL [Concomitant]
  2. CLARAVIS [Suspect]
     Dosage: 40 MILLIGRAM;
     Route: 048
     Dates: start: 20110809, end: 20111001

REACTIONS (1)
  - UNINTENDED PREGNANCY [None]
